FAERS Safety Report 14941979 (Version 1)
Quarter: 2018Q2

REPORT INFORMATION
  Report Type: Spontaneous
  Country: LB (occurrence: LB)
  Receive Date: 20180527
  Receipt Date: 20180527
  Transmission Date: 20180711
  Serious: Yes (Death)
  Sender: FDA-Public Use
  Company Number: LB-ABBVIE-18K-093-2368292-00

PATIENT

DRUGS (7)
  1. VENCLEXTA [Suspect]
     Active Substance: VENETOCLAX
     Dosage: DAY 4
     Route: 048
     Dates: start: 20180403, end: 20180403
  2. VENCLEXTA [Suspect]
     Active Substance: VENETOCLAX
     Dosage: DAY 3
     Route: 048
     Dates: start: 20180402, end: 20180402
  3. VENCLEXTA [Suspect]
     Active Substance: VENETOCLAX
     Dosage: DAY 5
     Route: 048
     Dates: start: 20180404, end: 20180404
  4. VENCLEXTA [Suspect]
     Active Substance: VENETOCLAX
     Indication: ACUTE MYELOID LEUKAEMIA
     Dosage: DAY 1
     Route: 048
     Dates: start: 20180331, end: 20180331
  5. VENCLEXTA [Suspect]
     Active Substance: VENETOCLAX
     Dosage: MAINTENANCE DOSE
     Route: 048
     Dates: start: 201804, end: 20180501
  6. VORICONAZOLE. [Concomitant]
     Active Substance: VORICONAZOLE
     Indication: PRODUCT USED FOR UNKNOWN INDICATION
  7. VENCLEXTA [Suspect]
     Active Substance: VENETOCLAX
     Dosage: DAY 2
     Route: 048
     Dates: start: 20180401, end: 20180401

REACTIONS (2)
  - Septic shock [Fatal]
  - Off label use [Fatal]

NARRATIVE: CASE EVENT DATE: 20180331
